FAERS Safety Report 14702540 (Version 1)
Quarter: 2018Q2

REPORT INFORMATION
  Report Type: Spontaneous
  Country: FR (occurrence: FR)
  Receive Date: 20180401
  Receipt Date: 20180401
  Transmission Date: 20180711
  Serious: Yes (Other)
  Sender: FDA-Public Use
  Company Number: FR-MERCK KGAA-2044853

PATIENT
  Age: 32 Year
  Sex: Female

DRUGS (1)
  1. NOVOTHYROX [Suspect]
     Active Substance: LEVOTHYROXINE SODIUM
     Indication: PRODUCT USED FOR UNKNOWN INDICATION
     Dates: start: 2017

REACTIONS (19)
  - Blood thyroid stimulating hormone increased [Recovered/Resolved]
  - Arthralgia [None]
  - Disturbance in attention [None]
  - Headache [None]
  - Migraine [None]
  - Blood thyroid stimulating hormone decreased [Recovered/Resolved]
  - Personal relationship issue [None]
  - Tri-iodothyronine free increased [Recovered/Resolved]
  - Thyroid stimulating immunoglobulin increased [None]
  - Anti-thyroid antibody positive [None]
  - Neck pain [None]
  - Presyncope [None]
  - Fatigue [None]
  - Thyroxine free increased [Recovered/Resolved]
  - Dizziness [None]
  - Depression [None]
  - Anger [None]
  - Feeling abnormal [None]
  - Alopecia [None]

NARRATIVE: CASE EVENT DATE: 2017
